FAERS Safety Report 5982458-X (Version None)
Quarter: 2008Q4

REPORT INFORMATION
  Report Type: 
  Country: None (occurrence: None)
  Receive Date: 20081208
  Receipt Date: 20081203
  Transmission Date: 20090506
  Serious: Yes (Life-Threatening, Hospitalization)
  Sender: FDA-Public Use
  Company Number: FR-BRISTOL-MYERS SQUIBB COMPANY-14430086

PATIENT
  Age: 66 Year
  Sex: Male

DRUGS (5)
  1. ABILIFY [Suspect]
     Indication: SCHIZOPHRENIA
     Dates: start: 20080601, end: 20080716
  2. HALDOL [Concomitant]
  3. PRAZEPAM [Concomitant]
  4. IMOVANE [Concomitant]
  5. LEPTICUR [Concomitant]

REACTIONS (3)
  - AUTONOMIC NERVOUS SYSTEM IMBALANCE [None]
  - DYSPHAGIA [None]
  - RHABDOMYOLYSIS [None]
